FAERS Safety Report 8884771 (Version 3)
Quarter: 2012Q4

REPORT INFORMATION
  Report Type: Report from Study
  Country: JP (occurrence: JP)
  Receive Date: 20121102
  Receipt Date: 20121207
  Transmission Date: 20130627
  Serious: Yes (Other)
  Sender: FDA-Public Use
  Company Number: JP-PFIZER INC-2012274398

PATIENT
  Age: 90 Year
  Sex: Female
  Weight: 43 kg

DRUGS (15)
  1. LIPITOR [Suspect]
     Indication: DYSLIPIDEMIA
     Dosage: 5 mg, Unknown/D
     Route: 048
     Dates: end: 20110526
  2. TACROLIMUS [Suspect]
     Indication: MYASTHENIA GRAVIS
     Dosage: 3 mg, daily
     Route: 048
     Dates: start: 20110506, end: 20110728
  3. PREDNISOLONE [Suspect]
     Indication: MYASTHENIA GRAVIS
     Dosage: 10 mg, alternate day
     Route: 065
     Dates: start: 20101112
  4. PREDONINE [Suspect]
     Indication: MYASTHENIA GRAVIS
     Dosage: 25 mg, alternate day
     Route: 048
     Dates: start: 20110401, end: 20110602
  5. PREDONINE [Suspect]
     Dosage: 20 mg, alternate day
     Route: 048
     Dates: start: 20110603, end: 20110616
  6. PREDONINE [Suspect]
     Dosage: 15 mg, alternate day
     Route: 048
     Dates: start: 20110617, end: 20110707
  7. PREDONINE [Suspect]
     Dosage: 10 mg, alternate day
     Route: 048
     Dates: start: 20110708
  8. BASEN [Suspect]
     Dosage: 0.9 mg, Unknown/D
     Route: 048
     Dates: end: 20111006
  9. MESTINON [Concomitant]
     Dosage: UNK
     Dates: start: 20110401
  10. TAKEPRON [Concomitant]
     Dosage: UNK
     Dates: end: 20110616
  11. GLAKAY [Concomitant]
     Dosage: UNK
  12. MAGMITT [Concomitant]
     Dosage: UNK
     Dates: end: 20110616
  13. ACTONEL [Concomitant]
     Dosage: UNK
     Dates: end: 20110707
  14. DIFLUCAN [Concomitant]
     Dosage: UNK
     Route: 048
     Dates: end: 20110602
  15. AMARYL [Concomitant]
     Dosage: UNK
     Dates: end: 20110602

REACTIONS (3)
  - Glucose tolerance impaired [Recovered/Resolved]
  - Anaemia [Recovered/Resolved]
  - Renal impairment [Recovering/Resolving]
